FAERS Safety Report 4860517-2 (Version None)
Quarter: 2005Q4

REPORT INFORMATION
  Report Type: 
  Country: None (occurrence: None)
  Receive Date: 20051216
  Receipt Date: 20051201
  Transmission Date: 20060501
  Serious: No
  Sender: FDA-Public Use
  Company Number: US200512000999

PATIENT
  Age: 24 Year
  Sex: Male

DRUGS (1)
  1. CYMBALTA [Suspect]
     Dosage: 60 MG,

REACTIONS (2)
  - ALCOHOLISM [None]
  - HEPATIC ENZYME INCREASED [None]
